FAERS Safety Report 6130096-0 (Version None)
Quarter: 2009Q1

REPORT INFORMATION
  Report Type: 
  Country: None (occurrence: None)
  Receive Date: 20090324
  Receipt Date: 20090318
  Transmission Date: 20090719
  Serious: Yes (Hospitalization)
  Sender: FDA-Public Use
  Company Number: US-BRISTOL-MYERS SQUIBB COMPANY-13379110

PATIENT
  Age: 56 Year
  Sex: Female
  Weight: 110 kg

DRUGS (17)
  1. CARBOPLATIN [Suspect]
     Indication: NON-SMALL CELL LUNG CANCER
     Dosage: DOSE PLANNED WAS 1080MG, BUT RECEIVED ONLY 270MG
     Route: 042
     Dates: start: 20060427, end: 20060427
  2. TAXOL [Suspect]
     Indication: NON-SMALL CELL LUNG CANCER
     Route: 042
     Dates: start: 20060427, end: 20060427
  3. ACTONEL [Concomitant]
     Route: 048
  4. CITRACAL [Concomitant]
     Route: 048
  5. SUDAFED 12 HOUR [Concomitant]
     Route: 048
  6. ADVIL [Concomitant]
     Route: 048
  7. ASTELIN [Concomitant]
     Route: 055
  8. AMI-TEX LA [Concomitant]
     Route: 048
  9. AMBIEN [Concomitant]
     Route: 048
  10. PAXIL [Concomitant]
     Route: 048
  11. ALLEGRA [Concomitant]
     Route: 048
  12. NEXIUM [Concomitant]
     Route: 048
  13. XANAX [Concomitant]
     Route: 048
  14. OXYCODONE HCL [Concomitant]
     Route: 048
     Dates: start: 20060323
  15. FENTANYL-25 [Concomitant]
     Route: 062
     Dates: start: 20060323
  16. TYLENOL [Concomitant]
     Route: 048
     Dates: start: 20060330
  17. SENOKOT [Concomitant]
     Route: 048
     Dates: start: 20060330

REACTIONS (2)
  - CHEST PAIN [None]
  - HYPERSENSITIVITY [None]
